FAERS Safety Report 6922960-7 (Version None)
Quarter: 2010Q3

REPORT INFORMATION
  Report Type: 
  Country: None (occurrence: None)
  Receive Date: 20100813
  Receipt Date: 20100804
  Transmission Date: 20110219
  Serious: Yes (Other)
  Sender: FDA-Public Use
  Company Number: US-MYLANLABS-2010S1014295

PATIENT
  Age: 40 Year
  Sex: Female

DRUGS (2)
  1. METHOTREXATE TABLETS, USP [Suspect]
     Indication: PSORIASIS
     Route: 048
  2. PAXIL [Concomitant]

REACTIONS (1)
  - BLINDNESS [None]
